FAERS Safety Report 19999803 (Version 4)
Quarter: 2021Q4

REPORT INFORMATION
  Report Type: Spontaneous
  Country: JP (occurrence: JP)
  Receive Date: 20211027
  Receipt Date: 20211129
  Transmission Date: 20220304
  Serious: Yes (Life-Threatening, Hospitalization, Other)
  Sender: FDA-Public Use
  Company Number: JP-MSD-M2021-24998

PATIENT
  Age: 71 Year
  Sex: Male

DRUGS (3)
  1. KEYTRUDA [Suspect]
     Active Substance: PEMBROLIZUMAB
     Indication: Non-small cell lung cancer
     Dosage: 200 MILLIGRAM, Q3W
     Route: 041
     Dates: start: 20210629, end: 20210720
  2. CARBOPLATIN [Suspect]
     Active Substance: CARBOPLATIN
     Indication: Non-small cell lung cancer
     Dosage: UNK
     Route: 065
     Dates: start: 20210629, end: 2021
  3. PEMETREXED DISODIUM [Suspect]
     Active Substance: PEMETREXED DISODIUM
     Indication: Non-small cell lung cancer
     Dosage: UNK
     Route: 065
     Dates: start: 20210629, end: 2021

REACTIONS (10)
  - Malignant neoplasm progression [Unknown]
  - Miller Fisher syndrome [Not Recovered/Not Resolved]
  - Myelosuppression [Unknown]
  - Dyslalia [Not Recovered/Not Resolved]
  - Ataxia [Unknown]
  - Eye movement disorder [Unknown]
  - Mood altered [Not Recovered/Not Resolved]
  - Muscular weakness [Unknown]
  - Arthralgia [Unknown]
  - Dysphagia [Unknown]

NARRATIVE: CASE EVENT DATE: 20210101
